FAERS Safety Report 5124691-5 (Version None)
Quarter: 2006Q4

REPORT INFORMATION
  Report Type: 
  Country: None (occurrence: None)
  Receive Date: 20061006
  Receipt Date: 20061006
  Transmission Date: 20070319
  Serious: Yes (Hospitalization)
  Sender: FDA-Public Use
  Company Number: None

PATIENT
  Sex: Male
  Weight: 72.5755 kg

DRUGS (1)
  1. LEXAPRO [Suspect]

REACTIONS (6)
  - COLITIS ULCERATIVE [None]
  - DIARRHOEA [None]
  - MENTAL DISORDER [None]
  - RECTAL HAEMORRHAGE [None]
  - STOMACH DISCOMFORT [None]
  - WEIGHT DECREASED [None]
